FAERS Safety Report 20474830 (Version 2)
Quarter: 2022Q1

REPORT INFORMATION
  Report Type: Spontaneous
  Country: US (occurrence: US)
  Receive Date: 20220215
  Receipt Date: 20220303
  Transmission Date: 20220423
  Serious: No
  Sender: FDA-Public Use
  Company Number: US-APELLIS-01178

PATIENT
  Age: 54 Year
  Sex: Female

DRUGS (10)
  1. EMPAVELI [Suspect]
     Active Substance: PEGCETACOPLAN
     Indication: Paroxysmal nocturnal haemoglobinuria
     Route: 058
  2. EMPAVELI [Suspect]
     Active Substance: PEGCETACOPLAN
     Indication: Paroxysmal nocturnal haemoglobinuria
     Route: 058
  3. 2325924 (GLOBALC3Sep21): Azithromycin [Concomitant]
     Indication: Product used for unknown indication
  4. 2566993 (GLOBALC3Sep21): Duloxetine [Concomitant]
     Indication: Product used for unknown indication
  5. 1325608 (GLOBALC3Sep21): Folic acid [Concomitant]
     Indication: Product used for unknown indication
  6. 1325316 (GLOBALC3Sep21): Gabapentin [Concomitant]
     Indication: Product used for unknown indication
  7. 54165 (GLOBALC3Sep21): Plaquenil [Concomitant]
     Indication: Product used for unknown indication
  8. 68435 (GLOBALC3Sep21): Synthroid [Concomitant]
     Indication: Product used for unknown indication
  9. 4374102 (GLOBALC3Sep21): Ultomiris [Concomitant]
     Indication: Product used for unknown indication
  10. 1328876 (GLOBALC3Sep21): Vitamin d3 [Concomitant]
     Indication: Product used for unknown indication

REACTIONS (7)
  - COVID-19 [Recovered/Resolved]
  - Eye oedema [Not Recovered/Not Resolved]
  - Product dose omission issue [Unknown]
  - Pain in extremity [Not Recovered/Not Resolved]
  - Product storage error [Recovered/Resolved]
  - Peripheral swelling [Not Recovered/Not Resolved]
  - Endocrine ophthalmopathy [Not Recovered/Not Resolved]

NARRATIVE: CASE EVENT DATE: 20211227
